FAERS Safety Report 15583660 (Version 2)
Quarter: 2018Q4

REPORT INFORMATION
  Report Type: Other
  Country: GB (occurrence: GB)
  Receive Date: 20181105
  Receipt Date: 20181128
  Transmission Date: 20190205
  Serious: Yes (Death)
  Sender: FDA-Public Use
  Company Number: GB-ACTELION-A-CH2018-180916

PATIENT

DRUGS (4)
  1. OPSUMIT [Suspect]
     Active Substance: MACITENTAN
     Indication: PULMONARY ARTERIAL HYPERTENSION
     Route: 048
  2. EPOPROSTENOL SODIUM. [Suspect]
     Active Substance: EPOPROSTENOL SODIUM
     Indication: PULMONARY ARTERIAL HYPERTENSION
     Route: 042
  3. AMBRISENTAN [Suspect]
     Active Substance: AMBRISENTAN
     Indication: PULMONARY ARTERIAL HYPERTENSION
     Route: 048
  4. BOSENTAN. [Suspect]
     Active Substance: BOSENTAN
     Indication: PULMONARY ARTERIAL HYPERTENSION
     Route: 048

REACTIONS (27)
  - Therapeutic response decreased [Unknown]
  - Arthralgia [Unknown]
  - Oxygen saturation abnormal [Unknown]
  - Rash [Unknown]
  - Muscle spasms [Unknown]
  - Nausea [Recovered/Resolved]
  - Dizziness [Unknown]
  - Cough [Unknown]
  - Nasopharyngitis [Unknown]
  - Weight decreased [Unknown]
  - Poor peripheral circulation [Unknown]
  - Diarrhoea [Unknown]
  - Liver function test abnormal [Unknown]
  - Oedema peripheral [Unknown]
  - Flushing [Unknown]
  - Fine motor skill dysfunction [Unknown]
  - Adverse event [Unknown]
  - Drug intolerance [Unknown]
  - Death [Fatal]
  - Nasal congestion [Unknown]
  - Pruritus [Unknown]
  - Abdominal pain upper [Unknown]
  - Vomiting [Recovered/Resolved]
  - Decreased appetite [Unknown]
  - Headache [Unknown]
  - Epistaxis [Unknown]
  - Unevaluable event [Unknown]
